FAERS Safety Report 4811753-2 (Version None)
Quarter: 2005Q4

REPORT INFORMATION
  Report Type: 
  Country: None (occurrence: None)
  Receive Date: 20051026
  Receipt Date: 20051010
  Transmission Date: 20060501
  Serious: Yes (Hospitalization)
  Sender: FDA-Public Use
  Company Number: 8012079

PATIENT
  Sex: Female

DRUGS (2)
  1. KEPPRA [Suspect]
  2. KEPPRA [Suspect]
     Dosage: 1500 MG 2/D

REACTIONS (2)
  - THIRST [None]
  - URINE SODIUM DECREASED [None]
